FAERS Safety Report 13237056 (Version 3)
Quarter: 2017Q1

REPORT INFORMATION
  Report Type: Report from Study
  Country: DE (occurrence: DE)
  Receive Date: 20170215
  Receipt Date: 20170301
  Transmission Date: 20170428
  Serious: No
  Sender: FDA-Public Use
  Company Number: DE-GILEAD-2017-0257583

PATIENT
  Age: 33 Year
  Sex: Female
  Weight: 95 kg

DRUGS (2)
  1. SOFOSBUVIR [Suspect]
     Active Substance: SOFOSBUVIR
     Indication: CHRONIC HEPATITIS C
     Dosage: 400 MG, UNK
     Route: 048
     Dates: start: 20161021, end: 20170112
  2. DAKLINZA [Concomitant]
     Active Substance: DACLATASVIR
     Dosage: 60 MG, QD
     Route: 048
     Dates: start: 20161021, end: 20170112

REACTIONS (1)
  - Respiratory tract infection [Recovered/Resolved]

NARRATIVE: CASE EVENT DATE: 20161212
